FAERS Safety Report 5807461-1 (Version None)
Quarter: 2008Q3

REPORT INFORMATION
  Report Type: 
  Country: None (occurrence: None)
  Receive Date: 20080711
  Receipt Date: 20020703
  Transmission Date: 20090109
  Serious: Yes (Other)
  Sender: FDA-Public Use
  Company Number: DE-BAXTER-2007BH009937

PATIENT
  Sex: Male

DRUGS (1)
  1. SORBITOL 3% IN PLASTIC CONTAINER [Suspect]
     Indication: BLADDER IRRIGATION
     Dosage: DOSE UNIT:UNKNOWN
     Route: 017
     Dates: start: 20020628, end: 20020628

REACTIONS (2)
  - ABDOMINAL INJURY [None]
  - URINARY BLADDER RUPTURE [None]
